FAERS Safety Report 14258870 (Version 1)
Quarter: 2017Q4

REPORT INFORMATION
  Report Type: Spontaneous
  Country: US (occurrence: None)
  Receive Date: 20171207
  Receipt Date: 20171207
  Transmission Date: 20180321
  Serious: Yes (Hospitalization)
  Sender: FDA-Public Use
  Company Number: None

PATIENT
  Age: 36 Year
  Sex: Male
  Weight: 72.3 kg

DRUGS (4)
  1. IFOSFAMIDE. [Suspect]
     Active Substance: IFOSFAMIDE
     Dates: end: 20171105
  2. TAXOL [Suspect]
     Active Substance: PACLITAXEL
     Dates: end: 20171103
  3. CARBOPLATIN. [Suspect]
     Active Substance: CARBOPLATIN
     Dates: end: 20171119
  4. ETOPOSIDE (VP-16) [Suspect]
     Active Substance: ETOPOSIDE
     Dates: end: 20171119

REACTIONS (5)
  - Nausea [None]
  - Vomiting [None]
  - Pyrexia [None]
  - Diarrhoea [None]
  - Neutropenia [None]

NARRATIVE: CASE EVENT DATE: 20171127
